FAERS Safety Report 18637969 (Version 2)
Quarter: 2021Q1

REPORT INFORMATION
  Report Type: Spontaneous
  Country: US (occurrence: US)
  Receive Date: 20201219
  Receipt Date: 20210228
  Transmission Date: 20210419
  Serious: No
  Sender: FDA-Public Use
  Company Number: NVSC2020US330045

PATIENT
  Age: 55 Year
  Sex: Female

DRUGS (1)
  1. GLATOPA [Suspect]
     Active Substance: GLATIRAMER ACETATE
     Indication: PRODUCT USED FOR UNKNOWN INDICATION
     Dosage: UNK
     Route: 065

REACTIONS (6)
  - Muscle spasms [Unknown]
  - Back pain [Unknown]
  - Headache [Unknown]
  - Tremor [Unknown]
  - Injection site pain [Unknown]
  - Injection site swelling [Unknown]
